FAERS Safety Report 13397763 (Version 1)
Quarter: 2017Q2

REPORT INFORMATION
  Report Type: Spontaneous
  Country: PL (occurrence: PL)
  Receive Date: 20170403
  Receipt Date: 20170403
  Transmission Date: 20170830
  Serious: Yes (Life-Threatening)
  Sender: FDA-Public Use
  Company Number: PL-PFIZER INC-2017138730

PATIENT
  Age: 68 Year
  Sex: Male
  Weight: 70 kg

DRUGS (1)
  1. OXALIPLATIN. [Suspect]
     Active Substance: OXALIPLATIN
     Indication: COLON CANCER
     Dosage: 145 MG, UNK
     Route: 042
     Dates: start: 20170216, end: 20170216

REACTIONS (2)
  - Pruritus [Recovered/Resolved]
  - Pallor [Recovered/Resolved]

NARRATIVE: CASE EVENT DATE: 20170216
